FAERS Safety Report 7960871-9 (Version None)
Quarter: 2011Q4

REPORT INFORMATION
  Report Type: 
  Country: None (occurrence: None)
  Receive Date: 20111121
  Receipt Date: 20101217
  Transmission Date: 20120403
  Serious: Yes (Other)
  Sender: FDA-Public Use
  Company Number: 2010-01053

PATIENT
  Age: 58 Year
  Sex: Female
  Weight: 74.8435 kg

DRUGS (6)
  1. LISINOPRIL AND HYDROCHLOROTHIAZIDE [Suspect]
     Indication: AORTIC DISORDER
     Dosage: 20MG/25MG (UNKNOWN, QD), PER ORAL
     Route: 048
     Dates: start: 20100201, end: 20101025
  2. LISINOPRIL AND HYDROCHLOROTHIAZIDE [Suspect]
     Indication: BLOOD PRESSURE INCREASED
     Dosage: 20MG/25MG (UNKNOWN, QD), PER ORAL
     Route: 048
     Dates: start: 20100201, end: 20101025
  3. NEXIUM (CAPSULES) [Concomitant]
  4. CELEBREX [Concomitant]
  5. CITALOPRAM HYDROBROMIDE [Concomitant]
  6. ESTRATEST [Concomitant]

REACTIONS (1)
  - THROMBOCYTOPENIA [None]
